FAERS Safety Report 7381913-8 (Version None)
Quarter: 2011Q1

REPORT INFORMATION
  Report Type: 
  Country: None (occurrence: None)
  Receive Date: 20110329
  Receipt Date: 20110317
  Transmission Date: 20110831
  Serious: Yes (Hospitalization, Other)
  Sender: FDA-Public Use
  Company Number: DE-ELI_LILLY_AND_COMPANY-DE201103005242

PATIENT
  Sex: Female

DRUGS (4)
  1. CALCIMAGON-D 3 [Concomitant]
  2. TARGIN [Concomitant]
  3. FORTEO [Suspect]
     Indication: OSTEOPOROSIS
     Dosage: UNK, DAILY (1/D)
     Route: 058
     Dates: start: 20100201, end: 20110201
  4. CORTISONE [Concomitant]

REACTIONS (1)
  - CEREBROVASCULAR ACCIDENT [None]
